FAERS Safety Report 26107817 (Version 1)
Quarter: 2025Q4

REPORT INFORMATION
  Report Type: Spontaneous
  Country: GB (occurrence: None)
  Receive Date: 20251201
  Receipt Date: 20251201
  Transmission Date: 20260117
  Serious: Yes (Other)
  Sender: INFORLIFE
  Company Number: GB-INFO-20250298

PATIENT
  Age: 42 Year
  Sex: Female

DRUGS (3)
  1. ROPIVACAINE [Suspect]
     Active Substance: ROPIVACAINE
     Indication: Epidural anaesthesia
     Dosage: TOPPED UP WITH 20 MLS 0.75% ROPIVACAINE WITH 100 MCG FENTANYL ; IN TOTAL
     Route: 008
  2. FENTANYL [Suspect]
     Active Substance: FENTANYL
     Indication: Epidural anaesthesia
     Dosage: TOPPED UP WITH 20 MLS 0.75% ROPIVACAINE WITH 100 MCG FENTANYL ; IN TOTAL
     Route: 008
  3. OXYTOCIN [Concomitant]
     Active Substance: OXYTOCIN
     Indication: Labour induction

REACTIONS (4)
  - Horner^s syndrome [Recovered/Resolved]
  - Paraesthesia [Recovered/Resolved]
  - Muscular weakness [Recovered/Resolved]
  - Exposure during pregnancy [Unknown]
